FAERS Safety Report 19192581 (Version 1)
Quarter: 2021Q2

REPORT INFORMATION
  Report Type: Spontaneous
  Country: US (occurrence: US)
  Receive Date: 20210428
  Receipt Date: 20210428
  Transmission Date: 20210717
  Serious: No
  Sender: FDA-Public Use
  Company Number: US-SA-2021SA124796

PATIENT

DRUGS (1)
  1. TUBERSOL [Suspect]
     Active Substance: TUBERCULIN PURIFIED PROTEIN DERIVATIVE
     Indication: IMMUNISATION
     Dosage: 0.5 ML
     Route: 030

REACTIONS (2)
  - Incorrect route of product administration [Unknown]
  - Incorrect dose administered [Unknown]
